FAERS Safety Report 13558195 (Version 3)
Quarter: 2017Q3

REPORT INFORMATION
  Report Type: Report from Study
  Country: US (occurrence: US)
  Receive Date: 20170517
  Receipt Date: 20170717
  Transmission Date: 20171127
  Serious: Yes (Death, Hospitalization)
  Sender: FDA-Public Use
  Company Number: US-B.I. PHARMACEUTICALS,INC./RIDGEFIELD-2017-BI-026484

PATIENT
  Age: 75 Year
  Sex: Female
  Weight: 88 kg

DRUGS (1)
  1. BIBW 2992 [Suspect]
     Active Substance: AFATINIB
     Indication: NON-SMALL CELL LUNG CANCER
     Dosage: TOTAL DOSE ADMINISTERED: 440 MG
     Route: 065
     Dates: start: 20151028, end: 20170503

REACTIONS (10)
  - Depression [Unknown]
  - Dizziness [Unknown]
  - Weight decreased [Unknown]
  - Headache [Unknown]
  - Muscular weakness [Unknown]
  - Death [Fatal]
  - Confusional state [Unknown]
  - Fall [Unknown]
  - Decreased appetite [Unknown]
  - Encephalopathy [Unknown]

NARRATIVE: CASE EVENT DATE: 20170411
